FAERS Safety Report 15620318 (Version 3)
Quarter: 2019Q1

REPORT INFORMATION
  Report Type: Report from Study
  Country: None (occurrence: US)
  Receive Date: 20181115
  Receipt Date: 20190326
  Transmission Date: 20190417
  Serious: Yes (Other)
  Sender: FDA-Public Use
  Company Number: US-ABBVIE-18K-163-2550652-00

PATIENT
  Age: 46 Year
  Sex: Female

DRUGS (2)
  1. HUMIRA [Suspect]
     Active Substance: ADALIMUMAB
     Route: 058
  2. HUMIRA [Suspect]
     Active Substance: ADALIMUMAB
     Indication: COLITIS ULCERATIVE
     Route: 058

REACTIONS (15)
  - Peripheral venous disease [Recovered/Resolved]
  - Urticaria [Unknown]
  - Abdominal pain upper [Unknown]
  - Skin cancer [Unknown]
  - Haematochezia [Unknown]
  - Irritable bowel syndrome [Unknown]
  - Swelling [Unknown]
  - Gastrointestinal ulcer haemorrhage [Unknown]
  - Squamous cell carcinoma of skin [Unknown]
  - Colitis ulcerative [Unknown]
  - Gait disturbance [Unknown]
  - Contusion [Recovered/Resolved]
  - Post procedural cellulitis [Recovered/Resolved]
  - Angiopathy [Unknown]
  - Vomiting [Unknown]

NARRATIVE: CASE EVENT DATE: 2018
